FAERS Safety Report 24724437 (Version 5)
Quarter: 2025Q3

REPORT INFORMATION
  Report Type: Spontaneous
  Country: CA (occurrence: CA)
  Receive Date: 20241212
  Receipt Date: 20250809
  Transmission Date: 20251021
  Serious: No
  Sender: Kenvue
  Company Number: CA-KENVUE-20241201470

PATIENT

DRUGS (5)
  1. PEPCID AC MAXIMUM STRENGTH [Suspect]
     Active Substance: FAMOTIDINE
     Indication: Oesophageal disorder
     Dosage: 1 DOSAGE FORM, TWICE A DAY
     Route: 048
     Dates: start: 20240917, end: 202412
  2. PEPCID AC MAXIMUM STRENGTH [Suspect]
     Active Substance: FAMOTIDINE
     Indication: Dyspepsia
  3. RABEPRAZOLE [Suspect]
     Active Substance: RABEPRAZOLE
     Indication: Oesophageal disorder
     Route: 065
  4. ATIVAN [Concomitant]
     Active Substance: LORAZEPAM
     Indication: Anxiety
     Route: 060
     Dates: start: 2024
  5. METOPROLOL [Concomitant]
     Active Substance: METOPROLOL
     Indication: Heart rate increased
     Route: 048
     Dates: start: 2024

REACTIONS (1)
  - Tremor [Recovered/Resolved]

NARRATIVE: CASE EVENT DATE: 20241201
